FAERS Safety Report 4905435-6 (Version None)
Quarter: 2006Q1

REPORT INFORMATION
  Report Type: 
  Country: None (occurrence: None)
  Receive Date: 20060208
  Receipt Date: 20060203
  Transmission Date: 20060701
  Serious: Yes (Other)
  Sender: FDA-Public Use
  Company Number: US-MERCK-0602USA01005

PATIENT
  Sex: Male
  Weight: 95 kg

DRUGS (5)
  1. VIOXX [Suspect]
     Indication: ARTHRITIS
     Route: 048
  2. VICODIN [Concomitant]
     Route: 065
  3. BEXTRA [Concomitant]
     Route: 065
  4. ADVIL [Concomitant]
     Route: 065
  5. ALEVE [Concomitant]
     Route: 065

REACTIONS (3)
  - CHEST PAIN [None]
  - EMOTIONAL DISORDER [None]
  - MYOCARDIAL INFARCTION [None]
